FAERS Safety Report 6742663-1 (Version None)
Quarter: 2010Q2

REPORT INFORMATION
  Report Type: 
  Country: None (occurrence: None)
  Receive Date: 20100526
  Receipt Date: 20100520
  Transmission Date: 20101027
  Serious: Yes (Hospitalization)
  Sender: FDA-Public Use
  Company Number: FR-GENENTECH-266970

PATIENT
  Sex: Female

DRUGS (4)
  1. RITUXIMAB [Suspect]
     Indication: NON-HODGKIN'S LYMPHOMA
     Dosage: 590.7 MG, UNK
     Route: 042
     Dates: start: 20000211
  2. RITUXIMAB [Suspect]
     Dosage: UNK
     Route: 042
     Dates: end: 20000301
  3. RITUXIMAB [Suspect]
     Dosage: 590.7 MG, UNK
     Route: 042
     Dates: start: 20070619, end: 20070803
  4. RITUXIMAB [Suspect]
     Dosage: 581.25 MG, UNK
     Route: 042
     Dates: start: 20090615, end: 20090709

REACTIONS (2)
  - FEBRILE NEUTROPENIA [None]
  - URINARY TRACT INFECTION [None]
